FAERS Safety Report 12954453 (Version 3)
Quarter: 2016Q4

REPORT INFORMATION
  Report Type: Report from Study
  Country: PT (occurrence: PT)
  Receive Date: 20161118
  Receipt Date: 20161219
  Transmission Date: 20170207
  Serious: Yes (Hospitalization)
  Sender: FDA-Public Use
  Company Number: PT-B.I. PHARMACEUTICALS,INC./RIDGEFIELD-2016-BI-075684

PATIENT
  Age: 20 Year
  Sex: Female
  Weight: 59.4 kg

DRUGS (6)
  1. AMOXICILLIN + CLAVULANIC ACID [Concomitant]
     Active Substance: AMOXICILLIN\CLAVULANIC ACID
     Indication: URINARY TRACT INFECTION
     Dosage: DOSE PER APP/DAILY DOSE: 500+125MG
     Route: 048
     Dates: start: 20161103, end: 20161111
  2. ESOMEPRAZOLE [Concomitant]
     Active Substance: ESOMEPRAZOLE
     Indication: ABDOMINAL PAIN UPPER
     Route: 042
     Dates: start: 20161103, end: 20161103
  3. EMPAGLIFLOZIN [Suspect]
     Active Substance: EMPAGLIFLOZIN
     Indication: TYPE 1 DIABETES MELLITUS
     Route: 065
     Dates: start: 20160804
  4. MINIGEST [Concomitant]
     Indication: CONTRACEPTIVE CAP
     Dosage: 0.02MG + 0.75MG
     Route: 048
     Dates: start: 2012
  5. ENALAPRIL [Concomitant]
     Active Substance: ENALAPRIL
     Indication: MICROALBUMINURIA
     Route: 048
     Dates: start: 2013
  6. METOCLOPRAMIDE. [Concomitant]
     Active Substance: METOCLOPRAMIDE
     Indication: VOMITING
     Route: 042
     Dates: start: 20161103, end: 20161103

REACTIONS (1)
  - Acetonaemia [Recovered/Resolved]

NARRATIVE: CASE EVENT DATE: 20161103
